FAERS Safety Report 22085288 (Version 1)
Quarter: 2023Q1

REPORT INFORMATION
  Report Type: Spontaneous
  Country: DE (occurrence: None)
  Receive Date: 20230310
  Receipt Date: 20230310
  Transmission Date: 20230418
  Serious: Yes (Other)
  Sender: FDA-Public Use
  Company Number: 2023A056930

PATIENT

DRUGS (6)
  1. DAPAGLIFLOZIN [Suspect]
     Active Substance: DAPAGLIFLOZIN
     Route: 048
  2. TORSEMIDE [Concomitant]
     Active Substance: TORSEMIDE
  3. BISOPROLOL [Concomitant]
     Active Substance: BISOPROLOL
  4. EPLENERON [Concomitant]
  5. ENTRESTO [Concomitant]
     Active Substance: SACUBITRIL\VALSARTAN
  6. IVABRADINE [Concomitant]
     Active Substance: IVABRADINE

REACTIONS (3)
  - Myocardial infarction [Unknown]
  - Left ventricular dysfunction [Unknown]
  - Coronary artery stenosis [Unknown]
